FAERS Safety Report 15272458 (Version 1)
Quarter: 2018Q4

REPORT INFORMATION
  Report Type: Spontaneous
  Country: DE (occurrence: DE)
  Receive Date: 20180813
  Receipt Date: 20180813
  Transmission Date: 20190204
  Serious: Yes (Hospitalization, Other)
  Sender: FDA-Public Use
  Company Number: DE-TEVA-2018-DE-939607

PATIENT

DRUGS (7)
  1. TREVILOR RETARD [Suspect]
     Active Substance: VENLAFAXINE HYDROCHLORIDE
     Indication: PRODUCT USED FOR UNKNOWN INDICATION
     Dosage: 75 MILLIGRAM DAILY; 75 MG, QD
     Route: 048
     Dates: start: 20150126, end: 20150127
  2. JATROSOM                           /00071702/ [Suspect]
     Active Substance: TRANYLCYPROMINE SULFATE
     Indication: PRODUCT USED FOR UNKNOWN INDICATION
     Dosage: 60 MILLIGRAM DAILY; 60 MG, QD
     Route: 048
     Dates: end: 20150112
  3. JATROSOM                           /00071702/ [Suspect]
     Active Substance: TRANYLCYPROMINE SULFATE
     Dosage: 30 MG, QD
     Route: 048
     Dates: start: 20150109
  4. VENLAFAXINE XR [Suspect]
     Active Substance: VENLAFAXINE HYDROCHLORIDE
     Indication: PRODUCT USED FOR UNKNOWN INDICATION
     Dosage: 75 MILLIGRAM DAILY; 75 MG, QD
     Route: 048
     Dates: start: 20150126, end: 20150127
  5. JATROSOM                           /00071702/ [Suspect]
     Active Substance: TRANYLCYPROMINE SULFATE
     Dosage: 40 MG, QD
     Route: 048
     Dates: start: 20150107
  6. JATROSOM                           /00071702/ [Suspect]
     Active Substance: TRANYLCYPROMINE SULFATE
     Dosage: 20 MG, QD
     Route: 048
     Dates: start: 20150111, end: 20150112
  7. ARIPIPRAZOLE. [Suspect]
     Active Substance: ARIPIPRAZOLE
     Indication: PRODUCT USED FOR UNKNOWN INDICATION
     Dosage: 10 MILLIGRAM DAILY; 10 MG, QD
     Route: 048
     Dates: start: 2013

REACTIONS (1)
  - Serotonin syndrome [Recovered/Resolved]

NARRATIVE: CASE EVENT DATE: 20150126
